FAERS Safety Report 9162403 (Version 2)
Quarter: 2013Q2

REPORT INFORMATION
  Report Type: Spontaneous
  Country: US (occurrence: US)
  Receive Date: 20130314
  Receipt Date: 20130415
  Transmission Date: 20140414
  Serious: No
  Sender: FDA-Public Use
  Company Number: US-PFIZER INC-2013081952

PATIENT
  Age: 68 Year
  Sex: Male
  Weight: 79.18 kg

DRUGS (21)
  1. SUTENT [Suspect]
     Indication: RENAL CANCER
     Dosage: 50 MG, ONE WEEK ON AND ONE WEEK OFF
     Dates: start: 20130222
  2. ACETYLSALICYLIC ACID [Concomitant]
     Dosage: LOW STRENGTH
     Dates: start: 20120827
  3. ACETYLSALICYLIC ACID [Concomitant]
     Dosage: 81 MG, 1X/DAY
     Route: 048
  4. CLONIDINE [Concomitant]
     Dosage: 0.2 MG, 1X/DAY
     Route: 048
     Dates: start: 20120827
  5. FISH OIL (+) D3 [Concomitant]
     Dosage: UNK MG, UNK
  6. FLUNISOLIDE [Concomitant]
     Dosage: 25 UG, UNK
     Dates: start: 20120827
  7. FUROSEMIDE [Concomitant]
     Dosage: UNK
  8. LOSARTAN POTASSIUM [Concomitant]
     Dosage: 100 MG, UNK
     Dates: start: 20120827
  9. NIACIN ER [Concomitant]
     Dosage: UNK
  10. POTASSIUM CHLORIDE ER [Concomitant]
     Dosage: UNK
     Dates: start: 20120827
  11. RED YEAST RICE [Concomitant]
     Dosage: 600 MG, UNK
     Dates: start: 20120827
  12. CIALIS [Concomitant]
     Dosage: 20 MG, AS NEEDED
     Dates: start: 20120827
  13. CO-Q-10 [Concomitant]
     Dosage: 50 MG, UNK
  14. LASIX [Concomitant]
     Dosage: 20 MG, 1X/DAY, PRN
     Route: 048
     Dates: start: 20120827
  15. LOSARTAN [Concomitant]
     Dosage: 100 MG, 1X/DAY
     Route: 048
  16. NIACIN [Concomitant]
     Dosage: 500 MG, UNK
  17. NIFEDIPINE [Concomitant]
     Dosage: 60 MG, 24 HR EXTENDED RELEASE
     Route: 048
     Dates: start: 20120827
  18. ONDANSETRON [Concomitant]
     Dosage: 4 MG, DISINTEGRATING TABLET
     Dates: start: 20120827
  19. POTASSIUM CHLORIDE [Concomitant]
     Dosage: 20 MEQ, ORAL PACKET
     Route: 048
     Dates: start: 20120827
  20. ZOFRAN [Concomitant]
     Dosage: 8 MG, DISINTEGRATING TABLET
     Route: 048
     Dates: start: 20120827
  21. FISH OIL [Concomitant]
     Dosage: 1000 MG, UNK

REACTIONS (3)
  - Palmar-plantar erythrodysaesthesia syndrome [Recovering/Resolving]
  - Periorbital oedema [Unknown]
  - Hypertension [Unknown]
